FAERS Safety Report 4360649-1 (Version None)
Quarter: 2004Q2

REPORT INFORMATION
  Report Type: 
  Country: None (occurrence: None)
  Receive Date: 20040518
  Receipt Date: 20040518
  Transmission Date: 20050107
  Serious: Yes (Hospitalization)
  Sender: FDA-Public Use
  Company Number: None

PATIENT
  Sex: Male

DRUGS (1)
  1. GENTAMICIN [Suspect]
     Indication: BACTERAEMIA
     Dosage: 80 MG IV Q 24 H
     Route: 042
     Dates: start: 20041023, end: 20041028

REACTIONS (2)
  - BLOOD CREATININE INCREASED [None]
  - GASTROINTESTINAL HAEMORRHAGE [None]
